FAERS Safety Report 11146307 (Version 2)
Quarter: 2015Q2

REPORT INFORMATION
  Report Type: Spontaneous
  Country: BR (occurrence: BR)
  Receive Date: 20150528
  Receipt Date: 20150604
  Transmission Date: 20150821
  Serious: Yes (Other)
  Sender: FDA-Public Use
  Company Number: BR-PFIZER INC-2015155205

PATIENT
  Age: 83 Year
  Sex: Female
  Weight: 56 kg

DRUGS (19)
  1. AAS INFANTIL [Concomitant]
     Active Substance: ASPIRIN
     Dosage: 100 MG, UNK
  2. CIPROFLOXACIN. [Concomitant]
     Active Substance: CIPROFLOXACIN
     Dosage: 400 MG, UNK
  3. HIDANTAL [Concomitant]
     Active Substance: PHENYTOIN SODIUM
     Dosage: 100 MG, UNK
  4. OLANZAPINE. [Concomitant]
     Active Substance: OLANZAPINE
     Dosage: 2.5 MG, UNK
  5. DIGESAN [Concomitant]
     Active Substance: BROMOPRIDE
     Dosage: 10 MG, UNK
  6. PURAN [Concomitant]
     Active Substance: LEVOTHYROXINE SODIUM
     Dosage: UNK
  7. ZOLPIDEM [Concomitant]
     Active Substance: ZOLPIDEM\ZOLPIDEM TARTRATE
     Dosage: 10 MG, UNK
  8. ALOPURINOL [Concomitant]
     Active Substance: ALLOPURINOL
     Dosage: 300 MG, UNK
  9. DIMORF [Concomitant]
     Active Substance: MORPHINE SULFATE
     Dosage: UNK
  10. ESOMEPRAZOLE [Concomitant]
     Active Substance: ESOMEPRAZOLE
     Dosage: 40 MG, UNK
  11. LIPITOR [Suspect]
     Active Substance: ATORVASTATIN CALCIUM
     Dosage: 10 MG, 1X/DAY
  12. CORTISONAL [Concomitant]
     Dosage: 50 MG, UNK
  13. ERANZ [Concomitant]
     Active Substance: DONEPEZIL HYDROCHLORIDE
     Dosage: 5 MG, UNK
  14. TYLENOL [Concomitant]
     Active Substance: ACETAMINOPHEN
     Dosage: UNK
  15. DONAREN [Concomitant]
     Active Substance: TRAZODONE HYDROCHLORIDE
     Dosage: 50 MG, UNK
  16. PIPERACILINA + TAZOBACTAM [Concomitant]
     Dosage: 4.5 G, UNK
  17. LIPITOR [Suspect]
     Active Substance: ATORVASTATIN CALCIUM
     Dosage: 10 MG, 1X/DAY (AT NIGHT, AT 20:00)
     Route: 050
     Dates: start: 20150317
  18. LACTULONA [Concomitant]
     Dosage: UNK
  19. VASOGARD [Concomitant]
     Active Substance: CILOSTAZOL
     Dosage: 100 MG, UNK

REACTIONS (2)
  - Oedema peripheral [Unknown]
  - Haematoma [Unknown]

NARRATIVE: CASE EVENT DATE: 20150317
